FAERS Safety Report 4965218-8 (Version None)
Quarter: 2006Q1

REPORT INFORMATION
  Report Type: 
  Country: None (occurrence: None)
  Receive Date: 20060201
  Receipt Date: 20051212
  Transmission Date: 20060701
  Serious: No
  Sender: FDA-Public Use
  Company Number: FACT0500723

PATIENT
  Age: 36 Year
  Sex: Male
  Weight: 83.9 kg

DRUGS (2)
  1. FACTIVE [Suspect]
     Indication: RESPIRATORY TRACT INFECTION BACTERIAL
     Dosage: 320MG QD ORAL
     Route: 048
     Dates: start: 20051121, end: 20051128
  2. DIOVAN [Concomitant]

REACTIONS (1)
  - RASH GENERALISED [None]
